FAERS Safety Report 10650728 (Version 6)
Quarter: 2015Q4

REPORT INFORMATION
  Report Type: Report from Study
  Country: DE (occurrence: DE)
  Receive Date: 20141215
  Receipt Date: 20151001
  Transmission Date: 20160304
  Serious: Yes (Hospitalization, Other)
  Sender: FDA-Public Use
  Company Number: DE-ABBVIE-14K-062-1319510-00

PATIENT
  Age: 52 Year
  Sex: Female

DRUGS (1)
  1. HUMIRA [Suspect]
     Active Substance: ADALIMUMAB
     Indication: CROHN^S DISEASE
     Route: 058
     Dates: start: 20130401, end: 20150803

REACTIONS (10)
  - Intestinal stenosis [Recovered/Resolved]
  - Gastrointestinal inflammation [Recovering/Resolving]
  - Intestinal stenosis [Recovering/Resolving]
  - Volvulus [Recovered/Resolved]
  - Erysipelas [Recovered/Resolved]
  - Intestinal stenosis [Recovered/Resolved]
  - Gastrointestinal inflammation [Recovered/Resolved]
  - Erysipelas [Recovered/Resolved]
  - Gastrointestinal inflammation [Recovered/Resolved]
  - Gastroenteritis [Recovering/Resolving]

NARRATIVE: CASE EVENT DATE: 201403
